FAERS Safety Report 8245498-6 (Version None)
Quarter: 2012Q1

REPORT INFORMATION
  Report Type: 
  Country: None (occurrence: None)
  Receive Date: 20120329
  Receipt Date: 20120323
  Transmission Date: 20120608
  Serious: Yes (Other)
  Sender: FDA-Public Use
  Company Number: US-ASTRAZENECA-2011SE41507

PATIENT
  Age: 59 Year
  Sex: Male
  Weight: 113.4 kg

DRUGS (2)
  1. SEROQUEL [Suspect]
     Indication: SLEEP DISORDER
     Route: 048
     Dates: start: 20100101
  2. SEROQUEL [Suspect]
     Route: 048

REACTIONS (7)
  - OFF LABEL USE [None]
  - BLOOD GLUCOSE INCREASED [None]
  - IDIOPATHIC THROMBOCYTOPENIC PURPURA [None]
  - DRUG PRESCRIBING ERROR [None]
  - DRUG DOSE OMISSION [None]
  - DYSPNOEA [None]
  - PLATELET COUNT DECREASED [None]
